FAERS Safety Report 7712923-6 (Version None)
Quarter: 2011Q3

REPORT INFORMATION
  Report Type: 
  Country: None (occurrence: None)
  Receive Date: 20110826
  Receipt Date: 20110822
  Transmission Date: 20111222
  Serious: Yes (Hospitalization)
  Sender: FDA-Public Use
  Company Number: PHHY2011US53458

PATIENT
  Sex: Female
  Weight: 47.166 kg

DRUGS (1)
  1. EXJADE [Suspect]
     Indication: SICKLE CELL ANAEMIA
     Dosage: 500 MG, DAILY
     Route: 048
     Dates: start: 20101013

REACTIONS (3)
  - DYSGEUSIA [None]
  - INFECTION [None]
  - NAUSEA [None]
